FAERS Safety Report 15542832 (Version 3)
Quarter: 2019Q2

REPORT INFORMATION
  Report Type: Spontaneous
  Country: TR (occurrence: TR)
  Receive Date: 20181023
  Receipt Date: 20190522
  Transmission Date: 20190711
  Serious: Yes (Other)
  Sender: FDA-Public Use
  Company Number: PHHY2018TR130182

PATIENT
  Age: 48 Year
  Sex: Female
  Weight: 60 kg

DRUGS (7)
  1. METHYLPREDNISOLONE. [Suspect]
     Active Substance: METHYLPREDNISOLONE
     Dosage: THE DOSING OF METHYLPREDNISOLONE WAS FIRSTLY 1MG/KG/DAY THEN 4 MG/KG / DAY. DURATION OF TREATMENT WA
     Route: 065
  2. METHYLPREDNISOLONE. [Suspect]
     Active Substance: METHYLPREDNISOLONE
     Indication: TAKAYASU^S ARTERITIS
     Dosage: 52 MG, QD
     Route: 048
  3. METHYLPREDNISOLONE. [Suspect]
     Active Substance: METHYLPREDNISOLONE
     Dosage: 5-10 MG/DAYUNK
     Route: 065
  4. AZATHIOPRINE. [Concomitant]
     Active Substance: AZATHIOPRINE
     Indication: TAKAYASU^S ARTERITIS
     Route: 065
  5. METHYLPREDNISOLONE. [Suspect]
     Active Substance: METHYLPREDNISOLONE
     Dosage: THE DOSING OF METHYLPREDNISOLONE WAS FIRSTLY 1MG/KG/DAY THEN 4 MG/KG / DAY. DURATION OF TREATMENT WA
     Route: 065
  6. METHOTREXATE. [Concomitant]
     Active Substance: METHOTREXATE
     Indication: POLYMYOSITIS
     Route: 065
  7. PREDNISOLONE. [Concomitant]
     Active Substance: PREDNISOLONE
     Indication: POLYMYOSITIS
     Route: 065

REACTIONS (4)
  - Osteoporosis [Unknown]
  - Osteoporotic fracture [Unknown]
  - Sinus bradycardia [Unknown]
  - Sinus bradycardia [Recovered/Resolved]

NARRATIVE: CASE EVENT DATE: 2001
